FAERS Safety Report 23449814 (Version 1)
Quarter: 2024Q1

REPORT INFORMATION
  Report Type: Spontaneous
  Country: US (occurrence: US)
  Receive Date: 20240129
  Receipt Date: 20240129
  Transmission Date: 20240410
  Serious: No
  Sender: FDA-Public Use
  Company Number: US-AUROBINDO-AUR-APL-2023-040290

PATIENT
  Age: 24 Year
  Sex: Female
  Weight: 54.422 kg

DRUGS (2)
  1. MIRTAZAPINE [Suspect]
     Active Substance: MIRTAZAPINE
     Indication: Sleep disorder
     Dosage: UNK UNK, ONCE A DAY (AT EVERY NIGHT)
     Route: 048
     Dates: start: 20230527
  2. MIRTAZAPINE [Suspect]
     Active Substance: MIRTAZAPINE
     Indication: Nausea

REACTIONS (4)
  - Drug ineffective [Unknown]
  - Product taste abnormal [Unknown]
  - Product quality issue [Unknown]
  - Product odour abnormal [Unknown]

NARRATIVE: CASE EVENT DATE: 20230527
